FAERS Safety Report 5358652-8 (Version None)
Quarter: 2007Q2

REPORT INFORMATION
  Report Type: 
  Country: None (occurrence: None)
  Receive Date: 20070614
  Receipt Date: 20070614
  Transmission Date: 20071010
  Serious: Yes (Other)
  Sender: FDA-Public Use
  Company Number: None

PATIENT
  Age: 39 Year
  Sex: Male
  Weight: 70.3075 kg

DRUGS (1)
  1. TAXOTERE [Suspect]
     Indication: PANCREATIC CARCINOMA
     Dosage: 37 MG  IV WEEKLY IV
     Route: 042
     Dates: start: 20070605, end: 20070613

REACTIONS (3)
  - BACK PAIN [None]
  - DYSPNOEA [None]
  - INFUSION RELATED REACTION [None]
